FAERS Safety Report 7591958-0 (Version None)
Quarter: 2011Q3

REPORT INFORMATION
  Report Type: 
  Country: None (occurrence: None)
  Receive Date: 20110701
  Receipt Date: 20110701
  Transmission Date: 20111222
  Serious: Yes (Life-Threatening, Hospitalization)
  Sender: FDA-Public Use
  Company Number: None

PATIENT
  Age: 56 Year
  Sex: Female
  Weight: 90.2658 kg

DRUGS (1)
  1. ACTOS [Suspect]
     Dosage: 1 TABLET 1 DAILY

REACTIONS (1)
  - BLOOD PRESSURE FLUCTUATION [None]
